FAERS Safety Report 4566684-2 (Version None)
Quarter: 2005Q1

REPORT INFORMATION
  Report Type: 
  Country: None (occurrence: None)
  Receive Date: 20050126
  Receipt Date: 20050113
  Transmission Date: 20050727
  Serious: Yes (Other)
  Sender: FDA-Public Use
  Company Number: 2005012314

PATIENT
  Age: 27 Year

DRUGS (1)
  1. DEPO-PROVERA [Suspect]
     Indication: ILL-DEFINED DISORDER
     Route: 030

REACTIONS (3)
  - INCONTINENCE [None]
  - LOSS OF CONSCIOUSNESS [None]
  - MEDICATION ERROR [None]
